FAERS Safety Report 16190614 (Version 2)
Quarter: 2024Q4

REPORT INFORMATION
  Report Type: Spontaneous
  Country: FR (occurrence: FR)
  Receive Date: 20190412
  Receipt Date: 20241223
  Transmission Date: 20250115
  Serious: Yes (Hospitalization, Other)
  Sender: PFIZER
  Company Number: None

PATIENT
  Age: 66 Year
  Sex: Female
  Weight: 55 kg

DRUGS (4)
  1. ZITHROMAX [Suspect]
     Active Substance: AZITHROMYCIN DIHYDRATE
     Indication: Mycobacterium kansasii infection
     Dosage: 250 MG, 1X/DAY
     Route: 048
     Dates: start: 20190131, end: 20190312
  2. RIFABUTIN [Suspect]
     Active Substance: RIFABUTIN
     Indication: Mycobacterium kansasii infection
     Dosage: 4 DF, 1X/DAY
     Route: 048
     Dates: start: 20190301, end: 20190312
  3. RIFAMPIN [Suspect]
     Active Substance: RIFAMPIN
     Indication: Mycobacterium kansasii infection
     Dosage: 2 DF, 1X/DAY
     Route: 048
     Dates: start: 20190131, end: 20190301
  4. ETHAMBUTOL HYDROCHLORIDE [Suspect]
     Active Substance: ETHAMBUTOL HYDROCHLORIDE
     Indication: Mycobacterium kansasii infection
     Dosage: 2 DF, 1X/DAY
     Route: 048
     Dates: start: 20190131, end: 20190312

REACTIONS (4)
  - Neutropenia [Recovered/Resolved]
  - Leukopenia [Recovered/Resolved]
  - Thrombocytopenia [Recovered/Resolved]
  - Off label use [Unknown]

NARRATIVE: CASE EVENT DATE: 20190131
